FAERS Safety Report 6942334-2 (Version None)
Quarter: 2010Q3

REPORT INFORMATION
  Report Type: 
  Country: None (occurrence: None)
  Receive Date: 20100826
  Receipt Date: 20100816
  Transmission Date: 20110219
  Serious: Yes (Hospitalization)
  Sender: FDA-Public Use
  Company Number: US-JNJFOC-20100300612

PATIENT
  Sex: Male
  Weight: 54.89 kg

DRUGS (12)
  1. INFLIXIMAB [Suspect]
     Indication: CROHN'S DISEASE
     Dosage: STARTED INFLIXIMAB IN THE FALL OF 2008
     Route: 042
  2. INFLIXIMAB [Suspect]
     Route: 042
  3. INFLIXIMAB [Suspect]
     Route: 042
  4. PREDNISONE [Concomitant]
  5. COLAZAL [Concomitant]
     Dosage: WEANED DOWN FROM TID
  6. IRON [Concomitant]
  7. MULTI-VITAMINS [Concomitant]
  8. CALCIUM [Concomitant]
  9. ACIDOPHILUS [Concomitant]
  10. 5-AMINOSALICYLIC ACID [Concomitant]
     Route: 048
  11. MERCAPTOPURINE [Concomitant]
  12. PRILOSEC [Concomitant]

REACTIONS (1)
  - CROHN'S DISEASE [None]
